FAERS Safety Report 13492186 (Version 4)
Quarter: 2023Q4

REPORT INFORMATION
  Report Type: Spontaneous
  Country: US (occurrence: US)
  Receive Date: 20170427
  Receipt Date: 20231226
  Transmission Date: 20240109
  Serious: Yes (Other)
  Sender: FDA-Public Use
  Company Number: US-JNJFOC-20170427317

PATIENT
  Sex: Male

DRUGS (5)
  1. RISPERDAL [Suspect]
     Active Substance: RISPERIDONE
     Indication: Attention deficit hyperactivity disorder
     Dosage: 0.25 MG, 0.5 MG, 1MG AND 2MG
     Route: 048
     Dates: start: 200201, end: 200806
  2. RISPERDAL [Suspect]
     Active Substance: RISPERIDONE
     Indication: Bipolar disorder
     Route: 048
  3. RISPERIDONE [Suspect]
     Active Substance: RISPERIDONE
     Indication: Attention deficit hyperactivity disorder
     Route: 048
  4. RISPERIDONE [Suspect]
     Active Substance: RISPERIDONE
     Indication: Bipolar disorder
     Dosage: 1 MG AND 2 MG
     Route: 048
     Dates: start: 200808, end: 201312
  5. RISPERIDONE [Suspect]
     Active Substance: RISPERIDONE
     Indication: Product used for unknown indication
     Route: 048

REACTIONS (3)
  - Obesity [Unknown]
  - Emotional disorder [Unknown]
  - Gynaecomastia [Unknown]

NARRATIVE: CASE EVENT DATE: 20060101
